FAERS Safety Report 24835391 (Version 1)
Quarter: 2025Q1

REPORT INFORMATION
  Report Type: Report from Study
  Country: US (occurrence: US)
  Receive Date: 20250113
  Receipt Date: 20250113
  Transmission Date: 20250409
  Serious: Yes (Other)
  Sender: ABBVIE
  Company Number: US-ABBVIE-6080186

PATIENT
  Age: 56 Year
  Sex: Male

DRUGS (1)
  1. RINVOQ [Suspect]
     Active Substance: UPADACITINIB
     Indication: Product used for unknown indication
     Route: 048
     Dates: end: 202403

REACTIONS (5)
  - Foot operation [Unknown]
  - Skin infection [Not Recovered/Not Resolved]
  - Ankle operation [Unknown]
  - Post procedural infection [Unknown]
  - Wound [Unknown]

NARRATIVE: CASE EVENT DATE: 20231001
